FAERS Safety Report 15540127 (Version 1)
Quarter: 2018Q4

REPORT INFORMATION
  Report Type: Spontaneous
  Country: FR (occurrence: FR)
  Receive Date: 20181023
  Receipt Date: 20181023
  Transmission Date: 20190205
  Serious: Yes (Hospitalization)
  Sender: FDA-Public Use
  Company Number: FR-SUN PHARMACEUTICAL INDUSTRIES LTD-2018RR-188289

PATIENT
  Age: 82 Year
  Sex: Female
  Weight: 57 kg

DRUGS (10)
  1. ZELITREX 500 MG, COMPRIME ENROBE [Concomitant]
     Active Substance: VALACYCLOVIR HYDROCHLORIDE
     Indication: PRODUCT USED FOR UNKNOWN INDICATION
     Dosage: UNK
     Route: 048
     Dates: start: 20180112, end: 20180119
  2. SIFROL 0,18 MG, COMPRIME [Concomitant]
     Indication: PRODUCT USED FOR UNKNOWN INDICATION
     Dosage: 1 DF, UNK
     Route: 048
     Dates: start: 201712, end: 20180116
  3. IZALGI 500 MG/25 MG, GELULE [Suspect]
     Active Substance: ACETAMINOPHEN\OPIUM
     Indication: POST HERPETIC NEURALGIA
     Dosage: 3 DF, DAILY
     Route: 048
     Dates: start: 20180206, end: 20180210
  4. SIFROL 0,18 MG, COMPRIME [Concomitant]
     Dosage: 2 DF, DAILY
     Route: 048
     Dates: start: 20180116
  5. TRAMADOL. [Suspect]
     Active Substance: TRAMADOL
     Indication: POST HERPETIC NEURALGIA
     Dosage: 100 MG, DAILY
     Route: 048
     Dates: start: 20180112, end: 20180210
  6. PARACETAMOL [Concomitant]
     Active Substance: ACETAMINOPHEN
     Indication: PRODUCT USED FOR UNKNOWN INDICATION
     Dosage: UNK
     Route: 048
  7. PROPRANOLOL [Concomitant]
     Active Substance: PROPRANOLOL HYDROCHLORIDE
     Indication: PRODUCT USED FOR UNKNOWN INDICATION
     Dosage: 40 MG, DAILY
     Route: 048
  8. TRAMADOL BASE [Concomitant]
     Active Substance: TRAMADOL
     Indication: PRODUCT USED FOR UNKNOWN INDICATION
     Dosage: 100 MG, DAILY
     Route: 048
     Dates: end: 20180112
  9. FRACTAL L.P. 80 MG, COMPRIME PELLICULE A LIBERATION PROLONGEE [Concomitant]
     Indication: PRODUCT USED FOR UNKNOWN INDICATION
     Dosage: 1 DF, DAILY
     Route: 048
  10. SIBELIUM 10 MG, COMPRIME SECABLE [Concomitant]
     Indication: PRODUCT USED FOR UNKNOWN INDICATION
     Dosage: UNK
     Route: 048
     Dates: end: 20180116

REACTIONS (2)
  - General physical health deterioration [Recovered/Resolved]
  - Confusional state [Recovered/Resolved]

NARRATIVE: CASE EVENT DATE: 20180210
